FAERS Safety Report 24172278 (Version 5)
Quarter: 2025Q4

REPORT INFORMATION
  Report Type: Spontaneous
  Country: JP (occurrence: JP)
  Receive Date: 20240805
  Receipt Date: 20251229
  Transmission Date: 20260117
  Serious: Yes (Hospitalization, Other)
  Sender: AMGEN
  Company Number: JP-TAKEDA-2024TJP011389

PATIENT
  Sex: Female
  Weight: 40.1 kg

DRUGS (11)
  1. VECTIBIX [Suspect]
     Active Substance: PANITUMUMAB
     Indication: Rectal cancer stage III
     Dosage: 270 MILLIGRAM, Q2WEEKS
     Route: 065
     Dates: start: 20240507
  2. OXALIPLATIN [Suspect]
     Active Substance: OXALIPLATIN
     Indication: Rectal cancer stage III
     Dosage: 110 MILLIGRAM, Q2WEEKS
     Route: 065
     Dates: start: 20240423, end: 20240521
  3. OXALIPLATIN [Suspect]
     Active Substance: OXALIPLATIN
     Dosage: UNK
     Route: 065
     Dates: start: 20240618, end: 20240618
  4. FLUOROURACIL [Suspect]
     Active Substance: FLUOROURACIL
     Indication: Rectal cancer stage III
     Dosage: 16810 MILLIGRAM, Q2WEEKS
     Route: 065
     Dates: start: 20240423, end: 20240521
  5. FLUOROURACIL [Suspect]
     Active Substance: FLUOROURACIL
     Dosage: UNK
     Route: 065
     Dates: start: 20240618, end: 20240618
  6. LEUCOVORIN [Concomitant]
     Active Substance: LEUCOVORIN\LEUCOVORIN CALCIUM
     Indication: Rectal cancer stage III
     Dosage: 260 MILLIGRAM, Q2WEEKS
     Route: 065
     Dates: start: 20240423, end: 20240521
  7. LEUCOVORIN [Concomitant]
     Active Substance: LEUCOVORIN\LEUCOVORIN CALCIUM
     Dosage: UNK
     Route: 065
     Dates: start: 20240618, end: 20240618
  8. MINOCYCLINE HYDROCHLORIDE [Concomitant]
     Active Substance: MINOCYCLINE HYDROCHLORIDE
     Indication: Skin disorder prophylaxis
     Dosage: 100 MILLIGRAM
     Route: 048
  9. MINOCYCLINE HYDROCHLORIDE [Concomitant]
     Active Substance: MINOCYCLINE HYDROCHLORIDE
     Dosage: 100 MILLIGRAM
     Route: 048
  10. HEPARINOID [Concomitant]
     Indication: Skin disorder prophylaxis
     Dosage: UNK
     Route: 061
  11. DIFLUPREDNATE [Concomitant]
     Active Substance: DIFLUPREDNATE
     Indication: Skin disorder prophylaxis
     Dosage: UNK
     Route: 061

REACTIONS (10)
  - Stoma site abscess [Recovered/Resolved]
  - Gastrointestinal stoma necrosis [Recovered/Resolved]
  - Anal ulcer [Recovering/Resolving]
  - Pigmentation disorder [Recovered/Resolved]
  - Dry skin [Recovered/Resolved]
  - Skin fissures [Recovered/Resolved]
  - Paronychia [Recovered/Resolved]
  - Dermatitis acneiform [Unknown]
  - Skin disorder [Unknown]
  - Neutrophil count decreased [Unknown]

NARRATIVE: CASE EVENT DATE: 20240603
